FAERS Safety Report 5126251-9 (Version None)
Quarter: 2006Q4

REPORT INFORMATION
  Report Type: 
  Country: None (occurrence: None)
  Receive Date: 20061012
  Receipt Date: 20061002
  Transmission Date: 20070319
  Serious: Yes (Hospitalization)
  Sender: FDA-Public Use
  Company Number: VE-ABBOTT-06P-178-0345799-00

PATIENT
  Sex: Female
  Weight: 40 kg

DRUGS (6)
  1. ZEMPLAR [Suspect]
     Indication: HYPERPARATHYROIDISM SECONDARY
     Route: 042
     Dates: start: 20051101
  2. CALCIUM CARBONATE [Concomitant]
     Indication: BLOOD PHOSPHORUS
     Route: 048
  3. FOLIC ACID [Concomitant]
     Indication: VITAMIN SUPPLEMENTATION
     Route: 048
  4. METHYLPREDNISOLONE [Concomitant]
     Indication: ANTIINFLAMMATORY THERAPY
     Route: 048
  5. ATENOLOL [Concomitant]
     Indication: HYPERTENSION
     Route: 048
  6. EPOGEN [Concomitant]
     Indication: ANAEMIA
     Route: 058

REACTIONS (2)
  - ANXIETY [None]
  - MYOCARDIAL INFARCTION [None]
